FAERS Safety Report 20066969 (Version 1)
Quarter: 2021Q4

REPORT INFORMATION
  Report Type: Spontaneous
  Country: GB (occurrence: None)
  Receive Date: 20211115
  Receipt Date: 20211115
  Transmission Date: 20220303
  Serious: Yes (Other)
  Sender: FDA-Public Use
  Company Number: GB-VistaPharm, Inc.-VER202111-002111

PATIENT

DRUGS (3)
  1. METOCLOPRAMIDE [Suspect]
     Active Substance: METOCLOPRAMIDE
     Route: 064
  2. CYCLIZINE [Suspect]
     Active Substance: CYCLIZINE
     Route: 064
  3. PROCHLORPERAZINE [Suspect]
     Active Substance: PROCHLORPERAZINE
     Route: 064

REACTIONS (5)
  - Hypotonia neonatal [Recovered/Resolved]
  - Respiratory distress [Recovered/Resolved]
  - Foetal exposure during pregnancy [Unknown]
  - Poor feeding infant [Recovered/Resolved]
  - Agitation neonatal [Recovered/Resolved]
